FAERS Safety Report 12126862 (Version 1)
Quarter: 2016Q1

REPORT INFORMATION
  Report Type: Report from Study
  Country: DE (occurrence: NL)
  Receive Date: 20160229
  Receipt Date: 20160229
  Transmission Date: 20160526
  Serious: Yes (Hospitalization, Other)
  Sender: FDA-Public Use
  Company Number: DE-ACTELION-A-NJ2016-131758

PATIENT
  Age: 59 Year
  Sex: Female

DRUGS (3)
  1. VENTAVIS [Suspect]
     Active Substance: ILOPROST
     Indication: SCLERODERMA
  2. OXYGEN. [Concomitant]
     Active Substance: OXYGEN
     Dosage: 1 L/MIN, UNK
  3. VENTAVIS [Suspect]
     Active Substance: ILOPROST
     Indication: PULMONARY ARTERIAL HYPERTENSION
     Dosage: 5 MCG, 6/D
     Route: 055
     Dates: start: 20140916

REACTIONS (6)
  - Diarrhoea [Recovered/Resolved]
  - Fluid retention [Not Recovered/Not Resolved]
  - Cardiac failure [Not Recovered/Not Resolved]
  - Viral infection [Recovered/Resolved]
  - Cough [Recovered/Resolved]
  - Pulmonary hypertension [Unknown]

NARRATIVE: CASE EVENT DATE: 20151125
